FAERS Safety Report 11411248 (Version 2)
Quarter: 2015Q3

REPORT INFORMATION
  Report Type: Spontaneous
  Country: US (occurrence: US)
  Receive Date: 20150821
  Receipt Date: 20150903
  Transmission Date: 20151125
  Serious: No
  Sender: FDA-Public Use
  Company Number: US-ELI_LILLY_AND_COMPANY-US201005004140

PATIENT
  Age: 82 Year
  Sex: Female

DRUGS (4)
  1. ACTOS [Concomitant]
     Active Substance: PIOGLITAZONE HYDROCHLORIDE
  2. HUMULIN 70/30 [Suspect]
     Active Substance: INSULIN HUMAN
     Dosage: UNK, UNK
     Dates: start: 20100513
  3. LEVOTHYROXINE. [Concomitant]
     Active Substance: LEVOTHYROXINE
  4. HUMALOG MIX75/25 [Suspect]
     Active Substance: INSULIN LISPRO
     Indication: DIABETES MELLITUS
     Dosage: 40 U, UNK
     Dates: start: 2010

REACTIONS (5)
  - Feeling abnormal [Unknown]
  - Drug dispensing error [Unknown]
  - Wrong drug administered [Unknown]
  - Malaise [Unknown]
  - Dizziness [Unknown]

NARRATIVE: CASE EVENT DATE: 201005
